FAERS Safety Report 6297663-5 (Version None)
Quarter: 2009Q3

REPORT INFORMATION
  Report Type: 
  Country: None (occurrence: None)
  Receive Date: 20090805
  Receipt Date: 20090728
  Transmission Date: 20100115
  Serious: Yes (Disabling)
  Sender: FDA-Public Use
  Company Number: US-ASTRAZENECA-2009SE06227

PATIENT
  Age: 82 Year
  Sex: Female

DRUGS (5)
  1. CRESTOR [Suspect]
     Route: 048
  2. TOPROL-XL [Concomitant]
     Route: 048
  3. VASOTEC [Concomitant]
  4. LUNESTA [Concomitant]
  5. NAPROSYN [Concomitant]

REACTIONS (3)
  - BODY HEIGHT DECREASED [None]
  - COUGH [None]
  - MACULAR DEGENERATION [None]
